FAERS Safety Report 19085011 (Version 1)
Quarter: 2021Q2

REPORT INFORMATION
  Report Type: Report from Study
  Country: US (occurrence: US)
  Receive Date: 20210401
  Receipt Date: 20210401
  Transmission Date: 20210717
  Serious: No
  Sender: FDA-Public Use
  Company Number: US-TRAVERE THERAPEUTICS, INC.-2020RTN00171

PATIENT
  Age: 1 Year
  Sex: Female

DRUGS (1)
  1. CHOLIC ACID [Suspect]
     Active Substance: CHOLIC ACID
     Indication: GENE MUTATION
     Dosage: 100 MG, 1X/DAY
     Dates: start: 20191013

REACTIONS (4)
  - Vomiting [Unknown]
  - Cough [Not Recovered/Not Resolved]
  - Constipation [Recovered/Resolved]
  - Diarrhoea [Not Recovered/Not Resolved]

NARRATIVE: CASE EVENT DATE: 202012
